FAERS Safety Report 4941167-6 (Version None)
Quarter: 2006Q1

REPORT INFORMATION
  Report Type: 
  Country: None (occurrence: None)
  Receive Date: 20060308
  Receipt Date: 20060224
  Transmission Date: 20060701
  Serious: Yes (Other)
  Sender: FDA-Public Use
  Company Number: 200610866BCC

PATIENT
  Age: 72 Year
  Sex: Male
  Weight: 90.7194 kg

DRUGS (10)
  1. ALEVE [Suspect]
     Indication: MUSCLE SPASMS
     Dosage: 440 MG, TOTAL DAILY, ORAL
     Route: 048
     Dates: start: 20060210, end: 20060223
  2. REQUIP [Concomitant]
  3. GEMFIBROZIL [Concomitant]
  4. HYDROCHLOROTHIAZIDE [Concomitant]
  5. OMEPRAZOLE [Concomitant]
  6. ATENOLOL [Concomitant]
  7. DOLLAR STORE ASPIRIN [Concomitant]
  8. CYANOCOBALAMIN B-12 [Concomitant]
  9. ALBUTEROL [Concomitant]
  10. LEXAPRO [Concomitant]

REACTIONS (2)
  - EYE DISORDER [None]
  - EYE HAEMORRHAGE [None]
